FAERS Safety Report 24538449 (Version 1)
Quarter: 2024Q4

REPORT INFORMATION
  Report Type: Spontaneous
  Country: CY (occurrence: CY)
  Receive Date: 20241023
  Receipt Date: 20241023
  Transmission Date: 20250115
  Serious: Yes (Hospitalization, Other)
  Sender: GILEAD
  Company Number: CY-GILEAD-2024-0691598

PATIENT
  Sex: Male

DRUGS (2)
  1. VEMLIDY [Suspect]
     Active Substance: TENOFOVIR ALAFENAMIDE FUMARATE
     Indication: Atrioventricular block complete
     Dosage: UNK
     Route: 065
     Dates: start: 202405
  2. SPORAL [ITRACONAZOLE] [Concomitant]
     Indication: Fungal infection
     Dosage: UNK

REACTIONS (2)
  - Rhabdomyolysis [Not Recovered/Not Resolved]
  - Off label use [Unknown]

NARRATIVE: CASE EVENT DATE: 20241019
